FAERS Safety Report 8386164-6 (Version None)
Quarter: 2012Q2

REPORT INFORMATION
  Report Type: 
  Country: None (occurrence: None)
  Receive Date: 20120525
  Receipt Date: 20120516
  Transmission Date: 20120825
  Serious: Yes (Hospitalization, Other)
  Sender: FDA-Public Use
  Company Number: JP-VERTEX PHARMACEUTICALS INC.-AE-2012-004430

PATIENT
  Age: 62 Year
  Sex: Female

DRUGS (7)
  1. TELAVIC (TELAPREVIR) [Suspect]
     Indication: HEPATITIS C
     Route: 048
     Dates: start: 20120203, end: 20120227
  2. PEGINTERFERON ALFA-2B [Concomitant]
     Route: 051
     Dates: start: 20120302, end: 20120408
  3. PEGINTERFERON ALFA-2B [Concomitant]
     Indication: HEPATITIS C
     Route: 051
     Dates: start: 20120206, end: 20120227
  4. LEVOTHYROXINE SODIUM [Concomitant]
     Route: 048
  5. PEGINTERFERON ALFA-2B [Concomitant]
     Route: 051
     Dates: start: 20120409
  6. RIBAVIRIN [Concomitant]
     Route: 048
     Dates: start: 20120206, end: 20120227
  7. ZETIA [Concomitant]
     Route: 048

REACTIONS (4)
  - RENAL IMPAIRMENT [None]
  - ANAEMIA [None]
  - FACE OEDEMA [None]
  - THROMBOCYTOPENIA [None]
